FAERS Safety Report 7685115-7 (Version None)
Quarter: 2011Q3

REPORT INFORMATION
  Report Type: 
  Country: None (occurrence: None)
  Receive Date: 20110816
  Receipt Date: 20110803
  Transmission Date: 20111222
  Serious: Yes (Death, Disabling, Other)
  Sender: FDA-Public Use
  Company Number: ES-UCBSA-037814

PATIENT
  Sex: Male
  Weight: 73 kg

DRUGS (13)
  1. ZOLPIDEM [Concomitant]
     Indication: INSOMNIA
     Dates: start: 20101021, end: 20110329
  2. NEUPRO [Suspect]
     Dates: start: 20100416, end: 20100429
  3. SINEMET [Concomitant]
     Dosage: 150/37.5 MG
     Dates: start: 20100702, end: 20100812
  4. NEUPRO [Suspect]
     Dates: start: 20100508, end: 20100510
  5. RANITIDINA [Concomitant]
     Indication: GASTRITIS PROPHYLAXIS
     Dates: start: 20100408, end: 20110329
  6. NEUPRO [Suspect]
     Dates: start: 20100430, end: 20100507
  7. ACETAMINOPHEN [Concomitant]
     Indication: PAIN PROPHYLAXIS
     Dates: start: 20100827, end: 20110329
  8. MIRTAZAPINE [Concomitant]
     Indication: INSOMNIA
     Dates: start: 20110214, end: 20110329
  9. NEUPRO [Suspect]
     Indication: PARKINSON'S DISEASE
     Dates: start: 20100408, end: 20100415
  10. SINEMET [Concomitant]
     Indication: PARKINSON'S DISEASE
     Dosage: 150/37.5 MG
     Dates: start: 20100914, end: 20101021
  11. SINEMET PLUS RETARD 100 [Concomitant]
     Indication: PARKINSON'S DISEASE
     Dosage: 100/25 MG
     Dates: start: 20080101, end: 20110329
  12. SINEMET [Concomitant]
     Indication: PARKINSON'S DISEASE
     Dates: start: 20050101, end: 20100701
  13. SINEMET [Concomitant]
     Dosage: 185.5/18.75
     Dates: start: 20101022, end: 20110329

REACTIONS (1)
  - OESOPHAGEAL ADENOCARCINOMA METASTATIC [None]
